FAERS Safety Report 25427653 (Version 1)
Quarter: 2025Q2

REPORT INFORMATION
  Report Type: Spontaneous
  Country: CN (occurrence: CN)
  Receive Date: 20250612
  Receipt Date: 20250612
  Transmission Date: 20250716
  Serious: Yes (Other)
  Sender: COHERUS
  Company Number: CN-SHANGHAI JUNSHI BIOSCIENCES CO., LTD.-CN2025014407

PATIENT

DRUGS (2)
  1. TORIPALIMAB [Suspect]
     Active Substance: TORIPALIMAB
     Indication: Renal cancer
     Route: 041
     Dates: start: 20250516, end: 20250516
  2. SORAFENIB TOSYLATE [Suspect]
     Active Substance: SORAFENIB TOSYLATE
     Indication: Renal cancer
     Dosage: 400 MG, BID
     Route: 048
     Dates: start: 20250505, end: 20250522

REACTIONS (1)
  - Myelosuppression [Recovering/Resolving]

NARRATIVE: CASE EVENT DATE: 20250522
